FAERS Safety Report 4709408-8 (Version None)
Quarter: 2005Q3

REPORT INFORMATION
  Report Type: 
  Country: None (occurrence: None)
  Receive Date: 20050708
  Receipt Date: 20050608
  Transmission Date: 20060218
  Serious: Yes (Other)
  Sender: FDA-Public Use
  Company Number: PHNU2005DE02207

PATIENT
  Age: 12 Year
  Sex: Male
  Weight: 79 kg

DRUGS (2)
  1. RITALIN [Suspect]
     Indication: ATTENTION DEFICIT/HYPERACTIVITY DISORDER
     Dosage: 10 - 15 MG, QD
     Route: 048
     Dates: start: 20000101, end: 20050609
  2. CONCERTA [Concomitant]
     Dosage: 18 MG, QD
     Route: 048
     Dates: start: 20041014

REACTIONS (1)
  - THROMBOCYTOPENIA [None]
